FAERS Safety Report 16763801 (Version 1)
Quarter: 2019Q3

REPORT INFORMATION
  Report Type: Spontaneous
  Country: CN (occurrence: CN)
  Receive Date: 20190902
  Receipt Date: 20190902
  Transmission Date: 20191005
  Serious: Yes (Death, Other)
  Sender: FDA-Public Use
  Company Number: CN-ACTELION-A-CH2019-195035

PATIENT
  Age: 63 Day
  Sex: Male
  Weight: 4.5 kg

DRUGS (2)
  1. ILOPROST. [Suspect]
     Active Substance: ILOPROST
     Indication: CONGENITAL CARDIOVASCULAR ANOMALY
     Dosage: 500 NG/KG, 6-8 X DAY
     Route: 055
  2. BOSENTAN. [Suspect]
     Active Substance: BOSENTAN
     Indication: CONGENITAL CARDIOVASCULAR ANOMALY
     Dosage: 2 MG/KG, BID
     Route: 048

REACTIONS (3)
  - Respiratory tract infection [Unknown]
  - Hypoxia [Unknown]
  - Multiple organ dysfunction syndrome [Fatal]
